FAERS Safety Report 7778461-X (Version None)
Quarter: 2011Q3

REPORT INFORMATION
  Report Type: 
  Country: None (occurrence: None)
  Receive Date: 20110926
  Receipt Date: 20110914
  Transmission Date: 20111222
  Serious: Yes (Hospitalization)
  Sender: FDA-Public Use
  Company Number: FR-GLAXOSMITHKLINE-B0747244A

PATIENT
  Sex: Female

DRUGS (6)
  1. OXYCONTIN [Concomitant]
     Route: 065
  2. VALSARTAN  AND HYDROCHLOROTHIAZIDE [Concomitant]
     Route: 065
  3. LYRICA [Concomitant]
     Route: 065
  4. ARIXTRA [Suspect]
     Indication: PRODUCT USED FOR UNKNOWN INDICATION
     Dosage: 5MG PER DAY
     Route: 058
     Dates: start: 20110610, end: 20110810
  5. FENOFIBRATE [Concomitant]
     Route: 065
  6. CLORAZEPATE DIPOTASSIUM [Concomitant]
     Route: 065

REACTIONS (3)
  - HAEMATOMA [None]
  - HAEMOGLOBIN DECREASED [None]
  - INCORRECT DRUG ADMINISTRATION DURATION [None]
